FAERS Safety Report 10632199 (Version 1)
Quarter: 2014Q4

REPORT INFORMATION
  Report Type: Spontaneous
  Country: US (occurrence: None)
  Receive Date: 20141203
  Receipt Date: 20141203
  Transmission Date: 20150529
  Serious: No
  Sender: FDA-Public Use
  Company Number: None

PATIENT

DRUGS (1)
  1. INSULIN [Suspect]
     Active Substance: INSULIN NOS

REACTIONS (5)
  - Wrong patient received medication [None]
  - Unresponsive to stimuli [None]
  - Drug dispensed to wrong patient [None]
  - Medication error [None]
  - Blood glucose decreased [None]

NARRATIVE: CASE EVENT DATE: 2014
